FAERS Safety Report 6914839-1 (Version None)
Quarter: 2010Q3

REPORT INFORMATION
  Report Type: 
  Country: None (occurrence: None)
  Receive Date: 20100804
  Receipt Date: 20100804
  Transmission Date: 20110219
  Serious: No
  Sender: FDA-Public Use
  Company Number: None

PATIENT
  Age: 75 Year
  Sex: Male

DRUGS (2)
  1. MINOCYCLINE HCL [Suspect]
     Dates: start: 20090914, end: 20090914
  2. LIDOCAINE/PRILOCAINE [Suspect]
     Dates: start: 20090914, end: 20090914

REACTIONS (2)
  - ANGIOEDEMA [None]
  - RASH [None]
